FAERS Safety Report 6850613-2 (Version None)
Quarter: 2010Q3

REPORT INFORMATION
  Report Type: 
  Country: None (occurrence: None)
  Receive Date: 20100716
  Receipt Date: 20071016
  Transmission Date: 20110219
  Serious: No
  Sender: FDA-Public Use
  Company Number: US-PFIZER INC-2007087758

PATIENT
  Sex: Female
  Weight: 59 kg

DRUGS (10)
  1. CHANTIX [Suspect]
     Indication: SMOKING CESSATION THERAPY
     Dates: start: 20070901
  2. ALTACE [Concomitant]
  3. PREVACID [Concomitant]
  4. AVAPRO [Concomitant]
  5. FUROSEMIDE [Concomitant]
  6. PAROXETINE [Concomitant]
  7. PRAVASTATIN [Concomitant]
  8. TOPROL-XL [Concomitant]
  9. SERETIDE MITE [Concomitant]
  10. LORAZEPAM [Concomitant]

REACTIONS (3)
  - MALAISE [None]
  - NAUSEA [None]
  - VOMITING [None]
